FAERS Safety Report 5669828-4 (Version None)
Quarter: 2008Q1

REPORT INFORMATION
  Report Type: 
  Country: None (occurrence: None)
  Receive Date: 20080317
  Receipt Date: 20080305
  Transmission Date: 20080703
  Serious: Yes (Hospitalization, Other)
  Sender: FDA-Public Use
  Company Number: US-PFIZER INC-2008021847

PATIENT
  Sex: Male
  Weight: 94.545 kg

DRUGS (4)
  1. CHANTIX [Suspect]
     Indication: EX-SMOKER
     Dates: start: 20080201, end: 20080224
  2. DILANTIN [Interacting]
     Indication: CONVULSION
  3. TEGRETOL [Concomitant]
  4. ACETYLSALICYLIC ACID [Concomitant]

REACTIONS (7)
  - BALANCE DISORDER [None]
  - CHEST PAIN [None]
  - CONFUSIONAL STATE [None]
  - DRUG INTERACTION [None]
  - DYSPHEMIA [None]
  - HYPOAESTHESIA [None]
  - VISION BLURRED [None]
